FAERS Safety Report 12405249 (Version 1)
Quarter: 2016Q2

REPORT INFORMATION
  Report Type: Spontaneous
  Country: US (occurrence: None)
  Receive Date: 20160525
  Receipt Date: 20160525
  Transmission Date: 20160815
  Serious: No
  Sender: FDA-Public Use
  Company Number: None

PATIENT
  Age: 45 Year
  Sex: Female

DRUGS (2)
  1. TUBERCULIN PURIFIED PROTEIN (TUBERSOL) [Concomitant]
  2. PPD [Suspect]
     Active Substance: TUBERCULIN PURIFIED PROTEIN DERIVATIVE
     Dosage: RIGHT ARM

REACTIONS (2)
  - Injection site bruising [None]
  - Contusion [None]

NARRATIVE: CASE EVENT DATE: 20160511
